FAERS Safety Report 12762963 (Version 2)
Quarter: 2016Q4

REPORT INFORMATION
  Report Type: Spontaneous
  Country: US (occurrence: US)
  Receive Date: 20160920
  Receipt Date: 20161020
  Transmission Date: 20170207
  Serious: No
  Sender: FDA-Public Use
  Company Number: US-ELI_LILLY_AND_COMPANY-US201609006027

PATIENT
  Sex: Male

DRUGS (3)
  1. METFORMIN HYDROCHLORIDE + GLYBURIDE [Concomitant]
  2. TRULICITY [Suspect]
     Active Substance: DULAGLUTIDE
     Dosage: 0.75 MG, WEEKLY (1/W)
     Route: 065
  3. TRULICITY [Suspect]
     Active Substance: DULAGLUTIDE
     Indication: TYPE 2 DIABETES MELLITUS
     Dosage: 0.75 MG, WEEKLY (1/W)
     Route: 065
     Dates: start: 201605

REACTIONS (5)
  - Feeling abnormal [Unknown]
  - Underdose [Unknown]
  - Burning sensation [Unknown]
  - Drug dose omission [Unknown]
  - Presyncope [Unknown]

NARRATIVE: CASE EVENT DATE: 20161006
